FAERS Safety Report 8183132-4 (Version None)
Quarter: 2012Q1

REPORT INFORMATION
  Report Type: 
  Country: None (occurrence: None)
  Receive Date: 20120131
  Receipt Date: 20111014
  Transmission Date: 20120608
  Serious: Yes (Hospitalization)
  Sender: FDA-Public Use
  Company Number: AUR-APL-2011-05545

PATIENT
  Age: 62 Year
  Sex: Female
  Weight: 104.3 kg

DRUGS (7)
  1. BUSPIRONE HCL [Concomitant]
  2. SIMVASTATIN [Concomitant]
  3. CYTOMEL [Concomitant]
  4. VENLAFAXINE [Suspect]
     Indication: DEPRESSION
     Dosage: UNKNOWN
     Dates: start: 20110801, end: 20110901
  5. EFFEXOR XR [Suspect]
     Indication: DEPRESSION
     Dosage: (150 MG, 1 D), ORAL
     Route: 048
     Dates: start: 19910101, end: 20110801
  6. EFFEXOR XR [Suspect]
     Indication: DEPRESSION
     Dosage: (150 MG, 1 D), ORAL
     Route: 048
     Dates: start: 20110901
  7. LISINOPRIL [Concomitant]

REACTIONS (1)
  - DEPRESSION [None]
